FAERS Safety Report 6782797-9 (Version None)
Quarter: 2010Q2

REPORT INFORMATION
  Report Type: 
  Country: None (occurrence: None)
  Receive Date: 20100616
  Receipt Date: 20100607
  Transmission Date: 20101027
  Serious: Yes (Hospitalization)
  Sender: FDA-Public Use
  Company Number: 2010AL003332

PATIENT
  Age: 79 Year
  Sex: Female

DRUGS (3)
  1. SERTRALINE HCL [Suspect]
     Indication: MAJOR DEPRESSION
     Dosage: 200 MG;QD
  2. METFORMIN HCL [Concomitant]
  3. LEVOTHYROXINE SODIUM [Concomitant]

REACTIONS (13)
  - BLOOD CREATINE PHOSPHOKINASE INCREASED [None]
  - BLOOD PRESSURE FLUCTUATION [None]
  - CATATONIA [None]
  - CONFUSIONAL STATE [None]
  - CONVULSION [None]
  - EXTRAPYRAMIDAL DISORDER [None]
  - HYPERPYREXIA [None]
  - MUSCLE RIGIDITY [None]
  - NEUROLEPTIC MALIGNANT SYNDROME [None]
  - PSYCHOMOTOR RETARDATION [None]
  - TACHYCARDIA [None]
  - TACHYPNOEA [None]
  - WHITE BLOOD CELL COUNT INCREASED [None]
